FAERS Safety Report 8138382 (Version 6)
Quarter: 2014Q4

REPORT INFORMATION
  Report Type: Spontaneous
  Country: US (occurrence: US)
  Receive Date: 20110915
  Receipt Date: 20141013
  Transmission Date: 20150529
  Serious: Yes (Hospitalization, Other)
  Sender: FDA-Public Use
  Company Number: US-BAYER-2011-082476

PATIENT
  Age: 27 Year
  Sex: Female
  Weight: 47.62 kg

DRUGS (4)
  1. MIRENA [Suspect]
     Active Substance: LEVONORGESTREL
     Indication: CONTRACEPTION
     Dosage: 20 MCG/24HR, CONT
     Route: 015
     Dates: start: 20110714, end: 20110902
  2. TUMS [Concomitant]
     Active Substance: CALCIUM CARBONATE
     Dosage: UNK
     Dates: start: 20110521
  3. MIRENA [Suspect]
     Active Substance: LEVONORGESTREL
     Indication: CONTRACEPTION
     Dosage: 20 MCG/24HR, CONT
     Route: 015
     Dates: start: 20110714, end: 20110902
  4. AMBIEN [Concomitant]
     Active Substance: ZOLPIDEM TARTRATE
     Dosage: 12.5, UNK, HS
     Dates: start: 20110524

REACTIONS (14)
  - Uterine perforation [Recovered/Resolved]
  - Injury [Recovered/Resolved]
  - Uterine haemorrhage [None]
  - Device breakage [None]
  - Fear [None]
  - Post procedural haemorrhage [None]
  - Vaginal haemorrhage [Recovered/Resolved]
  - Uterine pain [Recovered/Resolved]
  - Internal injury [None]
  - Depression [None]
  - Medical device discomfort [Recovered/Resolved]
  - Procedural pain [None]
  - Anxiety [None]
  - Emotional distress [None]

NARRATIVE: CASE EVENT DATE: 20110714
